FAERS Safety Report 9892503 (Version 1)
Quarter: 2014Q1

REPORT INFORMATION
  Report Type: Spontaneous
  Country: JP (occurrence: JP)
  Receive Date: 20140212
  Receipt Date: 20140212
  Transmission Date: 20141002
  Serious: Yes (Hospitalization)
  Sender: FDA-Public Use
  Company Number: JP-BAXTER-2014BAX006444

PATIENT
  Age: 7 Year
  Sex: Male
  Weight: 20 kg

DRUGS (2)
  1. FEIBA FOR INJECTION 1000 [Suspect]
     Indication: HAEMOSTASIS
     Route: 042
     Dates: start: 2009
  2. CONFACT F [Suspect]
     Indication: IMMUNE TOLERANCE INDUCTION
     Route: 042

REACTIONS (1)
  - Device related infection [Recovered/Resolved]
